FAERS Safety Report 7239554-9 (Version None)
Quarter: 2011Q1

REPORT INFORMATION
  Report Type: 
  Country: None (occurrence: None)
  Receive Date: 20110121
  Receipt Date: 20100210
  Transmission Date: 20110831
  Serious: No
  Sender: FDA-Public Use
  Company Number: US-PFIZER INC-2009315608

PATIENT
  Sex: Female
  Weight: 61 kg

DRUGS (3)
  1. LIPITOR [Concomitant]
     Indication: BLOOD CHOLESTEROL INCREASED
     Dosage: 20 MG, 1X/DAY
     Route: 048
  2. PROCARDIA [Suspect]
     Indication: MYOCARDIAL INFARCTION
     Dosage: 30 MG, 1X/DAY
     Route: 048
     Dates: start: 20041101
  3. CELEBREX [Concomitant]
     Indication: FIBROMYALGIA
     Dosage: 200 MG, 1X/DAY
     Route: 048

REACTIONS (4)
  - DRUG INEFFECTIVE [None]
  - BLOOD PRESSURE INCREASED [None]
  - CHEST PAIN [None]
  - MEDICATION RESIDUE [None]
